FAERS Safety Report 20733497 (Version 6)
Quarter: 2022Q4

REPORT INFORMATION
  Report Type: Spontaneous
  Country: US (occurrence: US)
  Receive Date: 20220421
  Receipt Date: 20221006
  Transmission Date: 20230113
  Serious: Yes (Hospitalization, Other)
  Sender: FDA-Public Use
  Company Number: US-BRISTOL-MYERS SQUIBB COMPANY-2022-010923

PATIENT
  Age: 57 Year
  Sex: Male
  Weight: 77.79 kg

DRUGS (64)
  1. POMALIDOMIDE [Suspect]
     Active Substance: POMALIDOMIDE
     Indication: Plasma cell myeloma
     Dosage: QD 1-12 PER CYCLE -28 DAYS
     Route: 048
     Dates: start: 20210921, end: 20220505
  2. POMALIDOMIDE [Suspect]
     Active Substance: POMALIDOMIDE
     Dosage: Q D1-21
     Route: 048
     Dates: start: 20220506
  3. LENALIDOMIDE [Suspect]
     Active Substance: LENALIDOMIDE
     Indication: Plasma cell myeloma
     Dosage: CONTINUOUS 28 DAYS
     Route: 048
     Dates: start: 20120627, end: 20131027
  4. LENALIDOMIDE [Suspect]
     Active Substance: LENALIDOMIDE
     Dosage: CONTINUOUS FOR 28 DAYS
     Route: 048
     Dates: start: 20131204, end: 20140724
  5. LENALIDOMIDE [Suspect]
     Active Substance: LENALIDOMIDE
     Dosage: CONTINUOUS FOR 28 DAYS
     Route: 048
     Dates: start: 20140725, end: 20151230
  6. LENALIDOMIDE [Suspect]
     Active Substance: LENALIDOMIDE
     Dosage: 21 DAYS ON 7 DAYS OFF
     Route: 048
     Dates: start: 20151231, end: 20160115
  7. LENALIDOMIDE [Suspect]
     Active Substance: LENALIDOMIDE
     Dosage: 21 DAYS ON 7 DAYS OFF
     Route: 048
     Dates: start: 20160303, end: 20160412
  8. LENALIDOMIDE [Suspect]
     Active Substance: LENALIDOMIDE
     Dosage: CONTINUOUS 28 DAYS
     Route: 048
     Dates: start: 20170520, end: 20180618
  9. LENALIDOMIDE [Suspect]
     Active Substance: LENALIDOMIDE
     Dosage: 21 DAYS ON 7 DAYS OFF
     Route: 048
     Dates: start: 20170712, end: 20180720
  10. LENALIDOMIDE [Suspect]
     Active Substance: LENALIDOMIDE
     Dosage: 14 DAYS ON 7 DAYS OFF
     Route: 048
     Dates: start: 20200207, end: 20200226
  11. LENALIDOMIDE [Suspect]
     Active Substance: LENALIDOMIDE
     Dosage: QD1-12
     Route: 048
     Dates: start: 20210430
  12. LENALIDOMIDE [Suspect]
     Active Substance: LENALIDOMIDE
     Route: 048
     Dates: start: 20180720, end: 20210929
  13. THALIDOMIDE [Suspect]
     Active Substance: THALIDOMIDE
     Indication: Plasma cell myeloma
     Route: 048
     Dates: start: 20160303, end: 20160412
  14. DEXAMETHASONE [Suspect]
     Active Substance: DEXAMETHASONE
     Indication: Plasma cell myeloma
     Dosage: D 1, 2, 8, 9, 15, 16, 22, 23.
     Route: 048
     Dates: start: 20110907, end: 20111014
  15. DEXAMETHASONE [Suspect]
     Active Substance: DEXAMETHASONE
     Route: 042
     Dates: start: 20120108, end: 20120108
  16. DEXAMETHASONE [Suspect]
     Active Substance: DEXAMETHASONE
     Route: 042
     Dates: start: 20120324, end: 20120324
  17. DEXAMETHASONE [Suspect]
     Active Substance: DEXAMETHASONE
     Dosage: DAILY FOR 5 DOSES DAYS 5, 8, 9, 11, 12
     Route: 048
     Dates: start: 20160422, end: 20160720
  18. DEXAMETHASONE [Suspect]
     Active Substance: DEXAMETHASONE
     Dosage: FOR 15 DOSES
     Route: 042
     Dates: start: 20161121, end: 20161128
  19. DEXAMETHASONE [Suspect]
     Active Substance: DEXAMETHASONE
     Dosage: QD 1, 8, 15, 22
     Route: 042
     Dates: start: 20180720, end: 20210929
  20. DEXAMETHASONE [Suspect]
     Active Substance: DEXAMETHASONE
     Dosage: QD 1, 2, 8, 9, 15, 16, 22, 23
     Route: 048
     Dates: start: 20210930
  21. DEXAMETHASONE [Suspect]
     Active Substance: DEXAMETHASONE
     Dosage: QD 1, 2, 8, 9, 15, 16, 22, 23
     Route: 048
     Dates: start: 20210920
  22. DEXAMETHASONE [Suspect]
     Active Substance: DEXAMETHASONE
     Dosage: QD 1, 2, 8, 9, 15, 16, 22, 23
     Route: 048
     Dates: start: 20220204, end: 20220505
  23. DEXAMETHASONE [Suspect]
     Active Substance: DEXAMETHASONE
     Dosage: Q 1,8,15,22 OF 28 DAY CYCLE
     Route: 048
     Dates: start: 20220506
  24. DEXAMETHASONE [Suspect]
     Active Substance: DEXAMETHASONE
     Route: 065
     Dates: start: 20210921, end: 20220505
  25. ALKERAN [Suspect]
     Active Substance: MELPHALAN
     Indication: Plasma cell myeloma
     Route: 042
     Dates: start: 20161121, end: 20161128
  26. ALKERAN [Suspect]
     Active Substance: MELPHALAN
     Dosage: ONE DOSE
     Route: 042
     Dates: start: 20120324, end: 20120324
  27. CYTOXAN [Suspect]
     Active Substance: CYCLOPHOSPHAMIDE
     Indication: Plasma cell myeloma
     Dosage: WEEKLY EACH VELCADE ON DAYS 1, 8, 15, 22
     Route: 042
     Dates: start: 20110812, end: 20111014
  28. CYTOXAN [Suspect]
     Active Substance: CYCLOPHOSPHAMIDE
     Dosage: 1 DOSE
     Route: 042
     Dates: start: 20120108, end: 20120108
  29. CYTOXAN [Suspect]
     Active Substance: CYCLOPHOSPHAMIDE
     Dosage: DAY 1,4
     Route: 042
     Dates: start: 20160422, end: 20160425
  30. CYTOXAN [Suspect]
     Active Substance: CYCLOPHOSPHAMIDE
     Dosage: 2 DOSES
     Route: 048
     Dates: start: 20160426, end: 20160720
  31. CYTOXAN [Suspect]
     Active Substance: CYCLOPHOSPHAMIDE
     Dosage: QD1 X 9 CYCLES
     Route: 042
     Dates: start: 20200109, end: 20200109
  32. CYTOXAN [Suspect]
     Active Substance: CYCLOPHOSPHAMIDE
     Dosage: QD 1 X 12 CYCLES
     Route: 042
     Dates: start: 20200110, end: 20210929
  33. CYTOXAN [Suspect]
     Active Substance: CYCLOPHOSPHAMIDE
     Route: 065
     Dates: start: 20180720, end: 20210929
  34. KYPROLIS [Suspect]
     Active Substance: CARFILZOMIB
     Indication: Plasma cell myeloma
     Dosage: 10 OF 12 CYCLES
     Route: 042
     Dates: start: 20180720, end: 20210929
  35. KYPROLIS [Suspect]
     Active Substance: CARFILZOMIB
     Dosage: 2 CONSECUTIVE DAYS PER WEEK FOR 3 WEEKS 1 WEEK OFF
     Route: 042
     Dates: start: 20220204
  36. KYPROLIS [Suspect]
     Active Substance: CARFILZOMIB
     Dosage: 2 CONSECUTIVE DAYS PER WEEK FOR 3 WEEKS, 1 WEEK OFF
     Route: 042
     Dates: start: 20220204, end: 20220505
  37. KYPROLIS [Suspect]
     Active Substance: CARFILZOMIB
     Route: 065
     Dates: start: 20210921, end: 20220505
  38. IXAZOMIB [Suspect]
     Active Substance: IXAZOMIB
     Indication: Product used for unknown indication
     Dosage: DAYS 1, 8 AND 15Q 28D
     Route: 048
     Dates: start: 20170712, end: 20180720
  39. IXAZOMIB [Suspect]
     Active Substance: IXAZOMIB
     Dosage: DAYS 1, 8 AND 15 Q 28D
     Route: 048
     Dates: start: 20170520, end: 20170618
  40. DARATUMUMAB [Suspect]
     Active Substance: DARATUMUMAB
     Indication: Product used for unknown indication
     Dosage: 7 OF 7 CYCLES
     Route: 042
     Dates: start: 20180720, end: 20210929
  41. FARYDAK [Suspect]
     Active Substance: PANOBINOSTAT
     Indication: Plasma cell myeloma
     Dosage: DAILY 8 DOSES
     Route: 048
     Dates: start: 20161121, end: 20161128
  42. ISATUXIMAB [Suspect]
     Active Substance: ISATUXIMAB
     Indication: Plasma cell myeloma
     Route: 065
     Dates: start: 20210921, end: 20220505
  43. ISATUXIMAB [Suspect]
     Active Substance: ISATUXIMAB
     Dosage: 2 OF 12 CYCLES, CYCLE -28 D
     Route: 042
     Dates: start: 20211120, end: 20220111
  44. BORTEZOMIB [Suspect]
     Active Substance: BORTEZOMIB
     Indication: Plasma cell myeloma
     Dosage: 2XWEEKLY, DAYS 1 AND 4 Q 7, 1 WEEK OFF Q 14 D
     Route: 058
     Dates: start: 20160422, end: 20160720
  45. BORTEZOMIB [Suspect]
     Active Substance: BORTEZOMIB
     Dosage: 1X WEEKLY, NO REST PERIOD: DAY 1 Q 7D
     Route: 042
     Dates: start: 20110811, end: 20111014
  46. BUSULFAN [Concomitant]
     Active Substance: BUSULFAN
     Indication: Product used for unknown indication
     Dosage: DAILY 4 DOSES
     Route: 042
     Dates: start: 20161121, end: 20161128
  47. GEMCITABINE [Concomitant]
     Active Substance: GEMCITABINE
     Indication: Product used for unknown indication
     Dosage: ONCE
     Route: 042
     Dates: start: 20161121, end: 20161128
  48. albuterol (ProAir HFA) [Concomitant]
     Indication: Wheezing
     Dosage: PUFF Q2
     Route: 055
     Dates: start: 20210922
  49. albuterol (ProAir HFA) [Concomitant]
     Indication: Dyspnoea
  50. VANICREAM [Concomitant]
     Active Substance: TITANIUM DIOXIDE\ZINC OXIDE
     Indication: Pain
     Dosage: TIB EFFECTED AREA
     Route: 061
     Dates: start: 20211001
  51. SYMBICORT [Concomitant]
     Active Substance: BUDESONIDE\FORMOTEROL FUMARATE DIHYDRATE
     Indication: Chronic obstructive pulmonary disease
     Dosage: 2PUFF?160-4.5 MCG/ACTUATION INHALER
     Route: 055
     Dates: start: 20210922
  52. COREG [Concomitant]
     Active Substance: CARVEDILOL
     Indication: Hypertension
     Route: 065
     Dates: start: 20211227
  53. FLEXERIL [Concomitant]
     Active Substance: CYCLOBENZAPRINE HYDROCHLORIDE
     Indication: Neck pain
     Dosage: QNIGHTLY
     Route: 065
     Dates: start: 20210125
  54. LOVENOX [Concomitant]
     Active Substance: ENOXAPARIN SODIUM
     Indication: Thrombosis prophylaxis
     Dosage: 100MG/1ML
     Route: 023
     Dates: start: 20210929
  55. ERGOCALCIFEROL [Concomitant]
     Active Substance: ERGOCALCIFEROL
     Indication: Supplementary motor area syndrome
     Route: 048
     Dates: start: 20220126
  56. FOLVITE [FOLIC ACID] [Concomitant]
     Indication: Supplementary motor area syndrome
     Route: 048
     Dates: start: 20220228
  57. NEURONTIN [Concomitant]
     Active Substance: GABAPENTIN
     Indication: Neuropathy peripheral
     Dosage: 600 MG, 300MG
     Route: 048
     Dates: start: 20220222
  58. CHRONULAC [Concomitant]
     Active Substance: LACTULOSE
     Indication: Constipation
     Dosage: 10 GRAM/15 ML
     Route: 048
     Dates: start: 20211129
  59. GLYCOLAX [Concomitant]
     Active Substance: POLYETHYLENE GLYCOL 3350
     Indication: Constipation
     Route: 048
     Dates: start: 20020228
  60. SENOKOT-S [Concomitant]
     Active Substance: DOCUSATE SODIUM\SENNOSIDES
     Indication: Constipation
     Dosage: 8.6 MG-50 MG
     Route: 048
     Dates: start: 20220225
  61. VIAGRA [Concomitant]
     Active Substance: SILDENAFIL CITRATE
     Indication: Erectile dysfunction
     Route: 048
     Dates: start: 20220228
  62. TIOTROPIUM [Concomitant]
     Active Substance: TIOTROPIUM
     Indication: Bronchospasm
     Route: 055
     Dates: start: 20210922
  63. ZOMETA [Concomitant]
     Active Substance: ZOLEDRONIC ACID
     Indication: Product used for unknown indication
  64. BLENREP [Concomitant]
     Active Substance: BELANTAMAB MAFODOTIN-BLMF
     Indication: Plasma cell myeloma
     Dosage: Q 1 OF 9 CYCLES
     Route: 042
     Dates: start: 20220506

REACTIONS (19)
  - Fall [Recovered/Resolved]
  - Electrolyte imbalance [Unknown]
  - Anaemia [Unknown]
  - Hyperglycaemia [Unknown]
  - Blood creatinine increased [Unknown]
  - Hypercalcaemia [Not Recovered/Not Resolved]
  - Chest pain [Recovered/Resolved]
  - Pneumonia [Unknown]
  - Leukopenia [Unknown]
  - Constipation [Unknown]
  - Pain [Unknown]
  - Anxiety [Unknown]
  - Hypertension [Unknown]
  - Abdominal distension [Unknown]
  - Gait disturbance [Unknown]
  - Mental disorder [Unknown]
  - Hyperkalaemia [Unknown]
  - Deep vein thrombosis [Unknown]
  - Mobility decreased [Unknown]

NARRATIVE: CASE EVENT DATE: 20160101
